FAERS Safety Report 5342735-2 (Version None)
Quarter: 2007Q2

REPORT INFORMATION
  Report Type: 
  Country: None (occurrence: None)
  Receive Date: 20070601
  Receipt Date: 20070522
  Transmission Date: 20071010
  Serious: Yes (Other)
  Sender: FDA-Public Use
  Company Number: US-PFIZER INC-2007041672

PATIENT
  Sex: Female
  Weight: 54.4 kg

DRUGS (5)
  1. CHANTIX [Suspect]
     Indication: EX-SMOKER
  2. PROVIGIL [Concomitant]
     Indication: SCHIZOID PERSONALITY DISORDER
  3. NEURONTIN [Concomitant]
     Indication: SCHIZOID PERSONALITY DISORDER
  4. PLAVIX [Concomitant]
  5. ZETIA [Concomitant]

REACTIONS (10)
  - ACTIVITIES OF DAILY LIVING IMPAIRED [None]
  - CONSTIPATION [None]
  - CRYING [None]
  - DECREASED APPETITE [None]
  - DEPRESSED MOOD [None]
  - FATIGUE [None]
  - IMPAIRED WORK ABILITY [None]
  - NAUSEA [None]
  - RESTLESS LEGS SYNDROME [None]
  - THINKING ABNORMAL [None]
